FAERS Safety Report 20042877 (Version 1)
Quarter: 2021Q4

REPORT INFORMATION
  Report Type: Spontaneous
  Country: GB (occurrence: GB)
  Receive Date: 20211108
  Receipt Date: 20211108
  Transmission Date: 20220303
  Serious: Yes (Hospitalization, Other)
  Sender: FDA-Public Use
  Company Number: GB-NOVARTISPH-NVSC2021GB246251

PATIENT
  Age: 70 Year
  Sex: Male

DRUGS (1)
  1. TISAGENLECLEUCEL [Suspect]
     Active Substance: TISAGENLECLEUCEL
     Indication: Product used for unknown indication
     Dosage: UNK, ONCE/SINGLE
     Route: 065
     Dates: start: 20210819

REACTIONS (8)
  - Cytokine release syndrome [Unknown]
  - Pyrexia [Unknown]
  - Hypotension [Unknown]
  - Cytopenia [Recovering/Resolving]
  - Immune effector cell-associated neurotoxicity syndrome [Unknown]
  - Aphasia [Unknown]
  - Nervous system disorder [Unknown]
  - Cognitive disorder [Unknown]
